FAERS Safety Report 5493133-2 (Version None)
Quarter: 2007Q4

REPORT INFORMATION
  Report Type: 
  Country: None (occurrence: None)
  Receive Date: 20071022
  Receipt Date: 20071022
  Transmission Date: 20080405
  Serious: Yes (Hospitalization)
  Sender: FDA-Public Use
  Company Number: None

PATIENT
  Sex: Male
  Weight: 105.18 kg

DRUGS (6)
  1. CYCLOPHOSPHAMIDE [Suspect]
     Dosage: 1785 MG
  2. DOXIL [Suspect]
     Dosage: 90 MG
  3. NEULASTA [Suspect]
     Dosage: 6 MG
  4. PREDNISONE [Suspect]
     Dosage: 500 MG
  5. RITUXIMAB (MOAB C2B8 ANTI CD20, CHIMERIC) [Suspect]
  6. VINCRISTINE SULFATE [Suspect]
     Dosage: 2 MG

REACTIONS (11)
  - BODY TEMPERATURE INCREASED [None]
  - DECREASED APPETITE [None]
  - DIZZINESS [None]
  - GRANULOMA [None]
  - HAEMOGLOBIN DECREASED [None]
  - HYPOTENSION [None]
  - INTERSTITIAL LUNG DISEASE [None]
  - LYMPHOCYTE COUNT ABNORMAL [None]
  - ORAL INTAKE REDUCED [None]
  - PAIN [None]
  - THROMBOSIS [None]
